FAERS Safety Report 18665247 (Version 1)
Quarter: 2020Q4

REPORT INFORMATION
  Report Type: Report from Study
  Country: US (occurrence: US)
  Receive Date: 20201225
  Receipt Date: 20201225
  Transmission Date: 20210114
  Serious: Yes (Life-Threatening)
  Sender: FDA-Public Use
  Company Number: NVSC2020US341325

PATIENT
  Age: 56 Year
  Sex: Female

DRUGS (1)
  1. GILENYA [Suspect]
     Active Substance: FINGOLIMOD HYDROCHLORIDE
     Indication: PRODUCT USED FOR UNKNOWN INDICATION
     Dosage: 0.5 MG, QD
     Route: 048
     Dates: start: 20191130

REACTIONS (6)
  - Pyrexia [Recovering/Resolving]
  - COVID-19 [Recovering/Resolving]
  - Asthenia [Recovering/Resolving]
  - Nasal congestion [Recovering/Resolving]
  - Headache [Recovering/Resolving]
  - Pain [Recovering/Resolving]

NARRATIVE: CASE EVENT DATE: 20201216
